FAERS Safety Report 11214931 (Version 1)
Quarter: 2015Q2

REPORT INFORMATION
  Report Type: Spontaneous
  Country: GB (occurrence: GB)
  Receive Date: 20150624
  Receipt Date: 20150624
  Transmission Date: 20150821
  Serious: Yes (Other)
  Sender: FDA-Public Use
  Company Number: GB-TEVA-571842ACC

PATIENT
  Age: 24 Year
  Sex: Female
  Weight: 55 kg

DRUGS (10)
  1. PARACETAMOL [Concomitant]
     Active Substance: ACETAMINOPHEN
     Route: 048
  2. ANAESTHETIC [Concomitant]
     Active Substance: UNSPECIFIED INGREDIENT
     Indication: URETHRAL DILATATION
  3. PROPOFOL. [Concomitant]
     Active Substance: PROPOFOL
  4. GENTAMICIN. [Concomitant]
     Active Substance: GENTAMICIN
  5. FENTANYL. [Concomitant]
     Active Substance: FENTANYL
  6. DESFLURANE. [Concomitant]
     Active Substance: DESFLURANE
  7. REMIFENTANIL [Concomitant]
     Active Substance: REMIFENTANIL
  8. OXYGEN. [Concomitant]
     Active Substance: OXYGEN
  9. ONDANSETRON [Suspect]
     Active Substance: ONDANSETRON
     Indication: PROPHYLAXIS OF NAUSEA AND VOMITING
     Route: 042
  10. IBUPROFEN. [Concomitant]
     Active Substance: IBUPROFEN
     Route: 048

REACTIONS (4)
  - Extrapyramidal disorder [Recovered/Resolved]
  - Unresponsive to stimuli [Recovered/Resolved]
  - Dystonia [Recovered/Resolved]
  - Confusional state [Recovered/Resolved]

NARRATIVE: CASE EVENT DATE: 20150602
